FAERS Safety Report 8126384-9 (Version None)
Quarter: 2012Q1

REPORT INFORMATION
  Report Type: 
  Country: None (occurrence: None)
  Receive Date: 20120209
  Receipt Date: 20120207
  Transmission Date: 20120608
  Serious: Yes (Other)
  Sender: FDA-Public Use
  Company Number: US-MERCK-1104USA01830

PATIENT
  Age: 57 Year
  Sex: Female
  Weight: 71 kg

DRUGS (7)
  1. SIMVASTATIN [Concomitant]
     Route: 048
  2. HYDROCHLOROTHIAZIDE [Concomitant]
     Route: 048
  3. ATENOLOL [Concomitant]
     Route: 065
  4. METFORMIN [Concomitant]
     Route: 065
  5. VALTURNA [Concomitant]
     Route: 065
  6. ASPIRIN [Concomitant]
     Route: 065
  7. JANUMET [Suspect]
     Route: 048

REACTIONS (2)
  - BLOOD GLUCOSE ABNORMAL [None]
  - HAEMORRHAGIC STROKE [None]
